FAERS Safety Report 8606102-8 (Version None)
Quarter: 2012Q3

REPORT INFORMATION
  Report Type: 
  Country: None (occurrence: None)
  Receive Date: 20120820
  Receipt Date: 19901126
  Transmission Date: 20120928
  Serious: Yes (Other)
  Sender: FDA-Public Use
  Company Number: US-ROCHE-1100480

PATIENT
  Age: 47 Year
  Sex: Male

DRUGS (1)
  1. ACTIVASE [Suspect]
     Indication: ACUTE MYOCARDIAL INFARCTION
     Dosage: 3 LITRE PER MIN
     Route: 040

REACTIONS (6)
  - BRADYCARDIA [None]
  - SUPRAVENTRICULAR EXTRASYSTOLES [None]
  - ELECTROCARDIOGRAM P WAVE ABNORMAL [None]
  - HYPOTENSION [None]
  - SINUS ARREST [None]
  - CHEST PAIN [None]
